FAERS Safety Report 7770753-3 (Version None)
Quarter: 2011Q3

REPORT INFORMATION
  Report Type: 
  Country: None (occurrence: None)
  Receive Date: 20110922
  Receipt Date: 20101206
  Transmission Date: 20111222
  Serious: No
  Sender: FDA-Public Use
  Company Number: US-ASTRAZENECA-2010SE57629

PATIENT
  Age: 79 Year
  Sex: Female
  Weight: 81.6 kg

DRUGS (8)
  1. ZOCOR [Suspect]
     Route: 065
  2. LEXAPRO [Suspect]
     Route: 065
  3. FISH OIL [Suspect]
     Route: 065
  4. XANAX [Suspect]
     Route: 065
  5. ASPIRIN [Suspect]
     Route: 065
  6. SEROQUEL [Suspect]
     Route: 048
  7. TOVIAZ [Suspect]
     Indication: BLADDER DISCOMFORT
     Route: 048
     Dates: start: 20101013, end: 20101017
  8. VITAMIN D [Suspect]
     Route: 065

REACTIONS (4)
  - DYSURIA [None]
  - CONSTIPATION [None]
  - DRY MOUTH [None]
  - VISION BLURRED [None]
